FAERS Safety Report 8056015-8 (Version None)
Quarter: 2012Q1

REPORT INFORMATION
  Report Type: 
  Country: None (occurrence: None)
  Receive Date: 20120119
  Receipt Date: 20120106
  Transmission Date: 20120608
  Serious: Yes (Other)
  Sender: FDA-Public Use
  Company Number: US-JHP PHARMACEUTICALS, LLC-JHP201200016

PATIENT
  Age: 32 Year
  Sex: Male

DRUGS (3)
  1. LISINOPRIL [Concomitant]
  2. ATENOLOL [Concomitant]
  3. PITRESSIN [Suspect]
     Indication: HYPOTENSION
     Dosage: 0.08 U/MIN X 3 DAYS AND WITHDRAWN OVER 12 HOURS
     Route: 042

REACTIONS (2)
  - WITHDRAWAL SYNDROME [None]
  - DIABETES INSIPIDUS [None]
